FAERS Safety Report 16076373 (Version 20)
Quarter: 2023Q1

REPORT INFORMATION
  Report Type: Spontaneous
  Country: US (occurrence: US)
  Receive Date: 20190315
  Receipt Date: 20230307
  Transmission Date: 20230418
  Serious: Yes (Hospitalization, Other)
  Sender: FDA-Public Use
  Company Number: US-PFIZER INC-2019106933

PATIENT
  Age: 73 Year
  Sex: Female
  Weight: 74.84 kg

DRUGS (5)
  1. IBRANCE [Suspect]
     Active Substance: PALBOCICLIB
     Indication: Breast cancer metastatic
     Dosage: 125 MG, CYCLIC (DAY, FOR 21DAYS, THEN OFF FOR 7 DAYS)
     Route: 048
     Dates: start: 201803, end: 2018
  2. IBRANCE [Suspect]
     Active Substance: PALBOCICLIB
     Indication: Non-Hodgkin^s lymphoma
     Dosage: 100 MG, CYCLIC (DAY, FOR 21DAYS, THEN OFF FOR 7 DAYS)
     Route: 048
     Dates: start: 2018, end: 2019
  3. IBRANCE [Suspect]
     Active Substance: PALBOCICLIB
     Indication: Breast cancer female
     Dosage: 100 MG, CYCLIC (DAY, FOR 21DAYS, THEN OFF FOR 7 DAYS)
     Route: 048
     Dates: start: 2019, end: 2019
  4. IBRANCE [Suspect]
     Active Substance: PALBOCICLIB
     Dosage: 75 MG
     Route: 048
  5. LETROZOLE [Concomitant]
     Active Substance: LETROZOLE
     Dosage: UNK
     Dates: start: 201803

REACTIONS (14)
  - Back pain [Unknown]
  - Pneumonia [Recovered/Resolved]
  - White blood cell count decreased [Recovered/Resolved]
  - Stomatitis necrotising [Recovered/Resolved]
  - Urinary tract infection [Recovered/Resolved]
  - Liver function test abnormal [Unknown]
  - Mouth ulceration [Unknown]
  - Impaired healing [Recovered/Resolved]
  - Gingival disorder [Unknown]
  - Infection [Unknown]
  - Chills [Unknown]
  - Hyperhidrosis [Unknown]
  - Cystitis [Unknown]
  - Bone disorder [Unknown]

NARRATIVE: CASE EVENT DATE: 20180401
